FAERS Safety Report 10620039 (Version 2)
Quarter: 2014Q4

REPORT INFORMATION
  Report Type: Report from Study
  Country: US (occurrence: US)
  Receive Date: 20141202
  Receipt Date: 20141202
  Transmission Date: 20150529
  Serious: Yes (Other)
  Sender: FDA-Public Use
  Company Number: US-SA-2014SA102639

PATIENT
  Age: 59 Year
  Sex: Female

DRUGS (5)
  1. FERROUS SULFATE [Concomitant]
     Active Substance: FERROUS SULFATE\FERROUS SULFATE, DRIED
  2. HYDROXYPROGESTERONE [Concomitant]
     Active Substance: HYDROXYPROGESTERONE
  3. AUBAGIO [Suspect]
     Active Substance: TERIFLUNOMIDE
     Indication: MULTIPLE SCLEROSIS
     Route: 048
     Dates: start: 20140701, end: 20140910
  4. COPAXONE [Concomitant]
     Active Substance: GLATIRAMER ACETATE
     Indication: MULTIPLE SCLEROSIS
     Dates: start: 20140101, end: 20140630
  5. DESOGESTREL AND ETHINYL ESTRADIOL [Concomitant]
     Active Substance: DESOGESTREL\ETHINYL ESTRADIOL

REACTIONS (11)
  - Drug ineffective [Unknown]
  - Dyspnoea [Unknown]
  - Mental disorder [Unknown]
  - Thinking abnormal [Unknown]
  - Amnesia [Unknown]
  - Diarrhoea [Unknown]
  - Rhinorrhoea [Unknown]
  - Nasopharyngitis [Unknown]
  - Confusional state [Unknown]
  - Choking sensation [Unknown]
  - Multiple sclerosis relapse [Unknown]
